FAERS Safety Report 4996159-8 (Version None)
Quarter: 2006Q2

REPORT INFORMATION
  Report Type: 
  Country: None (occurrence: None)
  Receive Date: 20060504
  Receipt Date: 20060418
  Transmission Date: 20061013
  Serious: Yes (Hospitalization)
  Sender: FDA-Public Use
  Company Number: DSA_28078_2006

PATIENT
  Age: 60 Year
  Sex: Female

DRUGS (3)
  1. ENALAPRIL MALEATE [Suspect]
     Indication: HYPERTENSION
     Dosage: DF PO
     Route: 048
     Dates: end: 20060217
  2. DICLOFENAC POTASSIUM [Suspect]
     Indication: RHEUMATOID ARTHRITIS
     Dosage: DF PO
     Route: 048
     Dates: end: 20060217
  3. METHOTREXATE [Concomitant]

REACTIONS (6)
  - BLOOD CREATININE INCREASED [None]
  - BLOOD SODIUM DECREASED [None]
  - C-REACTIVE PROTEIN INCREASED [None]
  - GASTROENTERITIS [None]
  - PLATELET COUNT INCREASED [None]
  - WHITE BLOOD CELL COUNT INCREASED [None]
